FAERS Safety Report 6604481-4 (Version None)
Quarter: 2010Q1

REPORT INFORMATION
  Report Type: 
  Country: None (occurrence: None)
  Receive Date: 20100226
  Receipt Date: 20091027
  Transmission Date: 20100710
  Serious: No
  Sender: FDA-Public Use
  Company Number: A0813622A

PATIENT
  Age: 11 Year
  Sex: Female

DRUGS (2)
  1. LAMICTAL CD [Suspect]
     Indication: PARTIAL SEIZURES
     Dosage: 5MG PER DAY
     Route: 048
     Dates: start: 20070521
  2. MOTRIN [Concomitant]
     Indication: HEADACHE

REACTIONS (2)
  - APATHY [None]
  - WEIGHT INCREASED [None]
